FAERS Safety Report 11082153 (Version 1)
Quarter: 2015Q2

REPORT INFORMATION
  Report Type: Spontaneous
  Country: GB (occurrence: None)
  Receive Date: 20150429
  Receipt Date: 20150429
  Transmission Date: 20150821
  Serious: Yes (Hospitalization)
  Sender: FDA-Public Use
  Company Number: 2843280

PATIENT
  Age: 78 Year
  Sex: Male

DRUGS (7)
  1. CARBOPLATIN. [Suspect]
     Active Substance: CARBOPLATIN
     Indication: CHEMOTHERAPY
  2. ASPIRIN. [Concomitant]
     Active Substance: ASPIRIN
  3. FLUCONAZOLE. [Concomitant]
     Active Substance: FLUCONAZOLE
  4. ESOMEPRAZOLE [Concomitant]
     Active Substance: ESOMEPRAZOLE
  5. ATORVASTATIN [Concomitant]
     Active Substance: ATORVASTATIN
  6. PEMETREXED [Suspect]
     Active Substance: PEMETREXED
     Indication: CHEMOTHERAPY
  7. ZOPICLONE [Concomitant]
     Active Substance: ZOPICLONE

REACTIONS (1)
  - Sepsis [None]
